FAERS Safety Report 6754397-8 (Version None)
Quarter: 2010Q2

REPORT INFORMATION
  Report Type: 
  Country: None (occurrence: None)
  Receive Date: 20100603
  Receipt Date: 20100213
  Transmission Date: 20101027
  Serious: No
  Sender: FDA-Public Use
  Company Number: US-ABBOTT-10P-163-0627165-00

PATIENT
  Sex: Female

DRUGS (6)
  1. SIMCOR [Suspect]
     Indication: BLOOD TRIGLYCERIDES INCREASED
  2. SYNTHROID [Concomitant]
     Indication: HYPOTHYROIDISM
  3. APEDRA [Concomitant]
     Indication: DIABETES MELLITUS
     Dosage: SLIDING SCALE
  4. LANTUS [Concomitant]
     Indication: DIABETES MELLITUS
  5. GLUMETZA [Concomitant]
     Indication: DIABETES MELLITUS
  6. RAMIPRIL [Concomitant]
     Indication: DRUG USE FOR UNKNOWN INDICATION

REACTIONS (1)
  - FLUSHING [None]
